FAERS Safety Report 24092081 (Version 1)
Quarter: 2024Q3

REPORT INFORMATION
  Report Type: Report from Study
  Country: CN (occurrence: CN)
  Receive Date: 20240715
  Receipt Date: 20240715
  Transmission Date: 20241016
  Serious: Yes (Hospitalization)
  Sender: NOVARTIS
  Company Number: CN-002147023-NVSC2024CN143380

PATIENT
  Sex: Male

DRUGS (1)
  1. LEQVIO [Suspect]
     Active Substance: INCLISIRAN SODIUM
     Indication: Hyperlipidaemia
     Dosage: 1 DOSAGE FORM, UNDER THE SKIN, USUALLY ADMINISTERED BY INJECTION
     Route: 058
     Dates: start: 20240412, end: 20240412

REACTIONS (7)
  - Dizziness [Unknown]
  - Alanine aminotransferase increased [Unknown]
  - Blood uric acid increased [Unknown]
  - Blood urea increased [Unknown]
  - Blood glucose increased [Unknown]
  - AST/ALT ratio abnormal [Unknown]
  - Mean cell haemoglobin concentration increased [Unknown]

NARRATIVE: CASE EVENT DATE: 20240706
